FAERS Safety Report 7124083-3 (Version None)
Quarter: 2010Q4

REPORT INFORMATION
  Report Type: 
  Country: None (occurrence: None)
  Receive Date: 20101126
  Receipt Date: 20101116
  Transmission Date: 20110411
  Serious: Yes (Hospitalization)
  Sender: FDA-Public Use
  Company Number: ES-ELI_LILLY_AND_COMPANY-ES201011004325

PATIENT
  Sex: Female
  Weight: 65 kg

DRUGS (7)
  1. FORTEO [Suspect]
     Indication: OSTEOPOROSIS
     Dosage: 20 UG, DAILY (1/D)
     Route: 058
     Dates: start: 20100101
  2. SEGURIL [Concomitant]
     Indication: HYPERTENSION
     Dosage: 20 MG, 1.5/24H
     Route: 048
  3. CARDIA [Concomitant]
     Indication: HYPERTENSION
     Dosage: 300 MG, DAILY (1/D)
     Route: 048
  4. EUTIROX [Concomitant]
     Indication: HYPOTHYROIDISM
     Dosage: UNK, DAILY (1/D)
     Route: 048
  5. ARTEDIL [Concomitant]
     Dosage: 10 MG, DAILY (1/D)
     Route: 048
  6. SUMADOL [Concomitant]
     Indication: PAIN
     Dosage: UNK, DAILY (1/D)
     Route: 048
  7. NOLOTIL [Concomitant]
     Indication: PAIN
     Dosage: UNK, AS NEEDED
     Route: 048

REACTIONS (1)
  - OEDEMA PERIPHERAL [None]
